FAERS Safety Report 9928204 (Version 1)
Quarter: 2014Q1

REPORT INFORMATION
  Report Type: Report from Study
  Country: US (occurrence: US)
  Receive Date: 20140227
  Receipt Date: 20140227
  Transmission Date: 20141002
  Serious: Yes (Other)
  Sender: FDA-Public Use
  Company Number: US-ROCHE-1332269

PATIENT
  Age: 32 Year
  Sex: Female

DRUGS (13)
  1. LUCENTIS [Suspect]
     Indication: RETINAL OEDEMA
     Route: 050
     Dates: start: 20101117
  2. LUCENTIS [Suspect]
     Indication: DIABETIC RETINOPATHY
  3. LUCENTIS [Suspect]
     Indication: RETINAL DEGENERATION
  4. AVASTIN [Suspect]
     Indication: DIABETIC RETINAL OEDEMA
     Dosage: OD
     Route: 050
     Dates: end: 20100608
  5. SYSTANE [Concomitant]
     Dosage: OU
     Route: 065
  6. INSULIN [Concomitant]
  7. CYCLOBENZAPRINE [Concomitant]
  8. OMEGA 3 [Concomitant]
  9. LYRICA [Concomitant]
     Route: 065
  10. ACTOS [Concomitant]
  11. TYLENOL [Concomitant]
  12. MOTRIN [Concomitant]
  13. METFORMIN [Concomitant]
     Route: 065

REACTIONS (5)
  - Macular oedema [Unknown]
  - Visual acuity reduced [Unknown]
  - Vision blurred [Unknown]
  - Neuralgia [Unknown]
  - Blood glucose increased [Unknown]
